FAERS Safety Report 21831111 (Version 1)
Quarter: 2023Q1

REPORT INFORMATION
  Report Type: Spontaneous
  Country: US (occurrence: None)
  Receive Date: 20230106
  Receipt Date: 20230106
  Transmission Date: 20230417
  Serious: Yes (Other)
  Sender: FDA-Public Use
  Company Number: None

PATIENT
  Age: 28 Year
  Sex: Female
  Weight: 67.5 kg

DRUGS (3)
  1. BALCOLTRA [Suspect]
     Active Substance: ETHINYL ESTRADIOL\LEVONORGESTREL
     Indication: Contraception
     Dosage: OTHER QUANTITY : 28 TABLET(S);?FREQUENCY : DAILY;?
     Route: 048
     Dates: start: 20221102, end: 20230106
  2. BALCOLTRA [Suspect]
     Active Substance: ETHINYL ESTRADIOL\LEVONORGESTREL
     Indication: Menstruation irregular
  3. COPPER-CONTAINING INTRAUTERINE DEVICE (IUD) [Concomitant]
     Active Substance: COPPER

REACTIONS (10)
  - Weight increased [None]
  - Headache [None]
  - Muscle spasms [None]
  - Haemorrhage [None]
  - Acne [None]
  - Abdominal distension [None]
  - Peripheral swelling [None]
  - Depression [None]
  - Anxiety [None]
  - Fatigue [None]

NARRATIVE: CASE EVENT DATE: 20221201
